FAERS Safety Report 23952778 (Version 1)
Quarter: 2024Q2

REPORT INFORMATION
  Report Type: Spontaneous
  Country: US (occurrence: None)
  Receive Date: 20240606
  Receipt Date: 20240606
  Transmission Date: 20240715
  Serious: Yes (Life-Threatening, Hospitalization, Disabling, Other)
  Sender: FDA-Public Use
  Company Number: None

PATIENT
  Age: 27 Year
  Sex: Female
  Weight: 79.83 kg

DRUGS (4)
  1. MIRENA [Suspect]
     Active Substance: LEVONORGESTREL
  2. APTIOM [Concomitant]
     Active Substance: ESLICARBAZEPINE ACETATE
  3. ZONISAMIDE [Concomitant]
  4. DAILY ONE A DAY VITAMIN [Concomitant]

REACTIONS (3)
  - Migraine [None]
  - Generalised tonic-clonic seizure [None]
  - Temporal lobe epilepsy [None]

NARRATIVE: CASE EVENT DATE: 20150504
